FAERS Safety Report 4301369-9 (Version None)
Quarter: 2004Q1

REPORT INFORMATION
  Report Type: 
  Country: None (occurrence: None)
  Receive Date: 20040223
  Receipt Date: 20030721
  Transmission Date: 20041129
  Serious: No
  Sender: FDA-Public Use
  Company Number: US-GLAXOSMITHKLINE-A0417641A

PATIENT
  Age: 56 Year
  Sex: Female

DRUGS (8)
  1. NAVELBINE [Suspect]
     Route: 042
     Dates: start: 20030101
  2. CISPLATIN [Concomitant]
     Route: 042
  3. NORVASC [Concomitant]
     Route: 048
  4. MONOPRIL [Concomitant]
     Route: 048
  5. ZOLOFT [Concomitant]
     Route: 048
  6. ASPIRIN [Concomitant]
     Route: 048
  7. PREVACID [Concomitant]
     Route: 048
  8. STOOL SOFTENER [Concomitant]
     Route: 048

REACTIONS (4)
  - ASTHENIA [None]
  - BACK PAIN [None]
  - FATIGUE [None]
  - PNEUMONIA [None]
